FAERS Safety Report 21022974 (Version 1)
Quarter: 2022Q2

REPORT INFORMATION
  Report Type: Spontaneous
  Country: CA (occurrence: CA)
  Receive Date: 20220629
  Receipt Date: 20220629
  Transmission Date: 20220720
  Serious: Yes (Other)
  Sender: FDA-Public Use
  Company Number: CA-PFIZER INC-202200902416

PATIENT
  Age: 49 Year
  Sex: Female

DRUGS (2)
  1. LIOTHYRONINE SODIUM [Suspect]
     Active Substance: LIOTHYRONINE SODIUM
     Dosage: UNK
     Route: 065
  2. UNSPECIFIED INGREDIENT [Suspect]
     Active Substance: UNSPECIFIED INGREDIENT
     Dosage: UNK

REACTIONS (1)
  - Hyperthyroidism [Unknown]
